FAERS Safety Report 8100157-5 (Version None)
Quarter: 2012Q1

REPORT INFORMATION
  Report Type: 
  Country: None (occurrence: None)
  Receive Date: 20120129
  Receipt Date: 20111130
  Transmission Date: 20120608
  Serious: No
  Sender: FDA-Public Use
  Company Number: US-ABBOTT-11P-163-0879408-00

PATIENT
  Sex: Female
  Weight: 68.1 kg

DRUGS (1)
  1. HUMIRA [Suspect]
     Indication: ACCIDENTAL EXPOSURE

REACTIONS (3)
  - HYPOAESTHESIA [None]
  - ACCIDENTAL EXPOSURE [None]
  - WRONG TECHNIQUE IN DRUG USAGE PROCESS [None]
